FAERS Safety Report 17697549 (Version 1)
Quarter: 2020Q2

REPORT INFORMATION
  Report Type: Report from Study
  Country: SA (occurrence: SA)
  Receive Date: 20200423
  Receipt Date: 20200423
  Transmission Date: 20200714
  Serious: Yes (Other)
  Sender: FDA-Public Use
  Company Number: SA-ASTRAZENECA-2020SE52455

PATIENT
  Age: 21917 Day
  Sex: Male
  Weight: 90 kg

DRUGS (2)
  1. SEVIKAR [Concomitant]
     Active Substance: AMLODIPINE BESYLATE\OLMESARTAN MEDOXOMIL
     Dosage: 10/5 MG ONCE DAILY
     Dates: start: 20180102
  2. FORXIGA [Suspect]
     Active Substance: DAPAGLIFLOZIN
     Indication: DIABETES MELLITUS
     Dosage: 10.0MG UNKNOWN
     Route: 048
     Dates: start: 20180401, end: 20190113

REACTIONS (3)
  - Hyperlipidaemia [Unknown]
  - Diabetic ketoacidosis [Recovered/Resolved with Sequelae]
  - Glycosylated haemoglobin increased [Unknown]

NARRATIVE: CASE EVENT DATE: 20190113
